FAERS Safety Report 5494164-9 (Version None)
Quarter: 2007Q4

REPORT INFORMATION
  Report Type: 
  Country: None (occurrence: None)
  Receive Date: 20071023
  Receipt Date: 20071023
  Transmission Date: 20080405
  Serious: Yes (Other)
  Sender: FDA-Public Use
  Company Number: None

PATIENT
  Sex: Male

DRUGS (2)
  1. TUBERCULIN PURIFIED PROTEIN DERIVATIVES [Suspect]
     Indication: TUBERCULIN TEST
     Dosage: 0.1CC ONE TIME INTRADERMAL
     Route: 023
     Dates: start: 20071001
  2. TUBERCULIN PURIFIED PROTEIN DERIVATIVES [Suspect]
     Indication: TUBERCULIN TEST
     Dosage: 0.1CC ONE TIME INTRADERMAL
     Route: 023
     Dates: start: 20071017

REACTIONS (5)
  - ARTHRALGIA [None]
  - DIZZINESS [None]
  - DYSGEUSIA [None]
  - HEADACHE [None]
  - NAUSEA [None]
